FAERS Safety Report 17251499 (Version 1)
Quarter: 2020Q1

REPORT INFORMATION
  Report Type: Spontaneous
  Country: DE (occurrence: DE)
  Receive Date: 20200109
  Receipt Date: 20200109
  Transmission Date: 20200409
  Serious: Yes (Hospitalization)
  Sender: FDA-Public Use
  Company Number: DE-TEVA-2020-DE-1164390

PATIENT
  Age: 92 Year
  Sex: Female

DRUGS (3)
  1. LASEA [Concomitant]
     Dosage: 80 MG, 0-0-1-0, CAPSULES , 80 MG 1 DAYS
  2. METOPROLOL ABZ O.K. 50 MG RETARDTABLETTEN [Suspect]
     Active Substance: METOPROLOL TARTRATE
     Dosage: 50 MG, 0.5-0-0.5-0, PROLONGED-RELEASE TABLETS , 25 MG 12 HOURS
  3. RAMIPRIL COMP CT 5 MG/25 MG [Concomitant]
     Dosage: 25 | 5 MG, 1-0-0-0, TABLETS , 1 DOSAGE FORMS 1 DAYS

REACTIONS (4)
  - Asthenia [Unknown]
  - General physical health deterioration [Unknown]
  - Bradycardia [Unknown]
  - Renal impairment [Unknown]
